FAERS Safety Report 21217342 (Version 3)
Quarter: 2022Q4

REPORT INFORMATION
  Report Type: Spontaneous
  Country: IE (occurrence: IE)
  Receive Date: 20220816
  Receipt Date: 20221004
  Transmission Date: 20230112
  Serious: No
  Sender: FDA-Public Use
  Company Number: IE-PFIZER INC-PV202200035476

PATIENT
  Age: 17 Year
  Sex: Female

DRUGS (1)
  1. ENBREL [Suspect]
     Active Substance: ETANERCEPT
     Indication: Juvenile idiopathic arthritis
     Dosage: 50 MG
     Route: 058

REACTIONS (3)
  - Device failure [Unknown]
  - Emotional distress [Unknown]
  - Discomfort [Unknown]

NARRATIVE: CASE EVENT DATE: 20220801
